FAERS Safety Report 15656666 (Version 1)
Quarter: 2018Q4

REPORT INFORMATION
  Report Type: Spontaneous
  Country: US (occurrence: US)
  Receive Date: 20181126
  Receipt Date: 20181126
  Transmission Date: 20190205
  Serious: Yes (Disabling)
  Sender: FDA-Public Use
  Company Number: None

PATIENT
  Age: 19 Year
  Sex: Female
  Weight: 60.75 kg

DRUGS (7)
  1. DILAUDED [Concomitant]
  2. TYLENOL [Concomitant]
     Active Substance: ACETAMINOPHEN
  3. CIMZIA [Suspect]
     Active Substance: CERTOLIZUMAB PEGOL
     Indication: COLITIS ULCERATIVE
     Dosage: ?          QUANTITY:4 INJECTION(S);OTHER FREQUENCY:ONE TIME INJECTION;?
     Route: 030
  4. ZOFRAN [Concomitant]
     Active Substance: ONDANSETRON HYDROCHLORIDE
  5. HUMIRA [Suspect]
     Active Substance: ADALIMUMAB
     Indication: COLITIS ULCERATIVE
     Dosage: ?          QUANTITY:2 INJECTION(S);OTHER FREQUENCY:FIRST INJECTION;?
     Route: 030
  6. VSL-3 PROBIOTIC [Concomitant]
  7. MULTIVITAMIN [Concomitant]
     Active Substance: VITAMINS

REACTIONS (16)
  - Photophobia [None]
  - Abdominal discomfort [None]
  - Migraine [None]
  - Hyperacusis [None]
  - Weight decreased [None]
  - Hypoaesthesia [None]
  - Drug ineffective [None]
  - Muscle spasms [None]
  - Neuralgia [None]
  - Pain [None]
  - Vomiting [None]
  - Screaming [None]
  - Dehydration [None]
  - Colectomy total [None]
  - Neck pain [None]
  - Nausea [None]

NARRATIVE: CASE EVENT DATE: 20180620
